FAERS Safety Report 6153810-7 (Version None)
Quarter: 2009Q2

REPORT INFORMATION
  Report Type: 
  Country: None (occurrence: None)
  Receive Date: 20090414
  Receipt Date: 20070907
  Transmission Date: 20091009
  Serious: Yes (Hospitalization, Other)
  Sender: FDA-Public Use
  Company Number: US-ASTRAZENECA-2006UW24881

PATIENT
  Age: 17000 Day
  Sex: Female
  Weight: 76.2 kg

DRUGS (20)
  1. SEROQUEL [Suspect]
     Indication: PSYCHOTIC DISORDER
     Route: 048
     Dates: end: 20060501
  2. SEROQUEL [Suspect]
     Indication: AGITATION
     Route: 048
     Dates: end: 20060501
  3. SEROQUEL [Suspect]
     Dosage: 100MG-400MG
     Route: 048
     Dates: start: 19990831
  4. SEROQUEL [Suspect]
     Dosage: 100MG-400MG
     Route: 048
     Dates: start: 19990831
  5. RISPERDAL [Concomitant]
  6. VASOTEC [Concomitant]
  7. HYDROCHLOROTHIAZIDE [Concomitant]
  8. CLONIDINE [Concomitant]
  9. DEPAKOTE [Concomitant]
  10. KLONOPIN [Concomitant]
  11. GLUCOPHAGE [Concomitant]
  12. ZYPREXA [Concomitant]
  13. CELEXA [Concomitant]
  14. LIPITOR [Concomitant]
  15. NORVASC [Concomitant]
  16. LEXAPRO [Concomitant]
  17. PROLIXIN DECANOATE [Concomitant]
  18. ABILIFY [Concomitant]
  19. TYLENOL [Concomitant]
  20. ELAVIL [Concomitant]

REACTIONS (20)
  - BACK PAIN [None]
  - BRONCHITIS [None]
  - CHRONIC SINUSITIS [None]
  - CONJUNCTIVITIS VIRAL [None]
  - DIABETES MELLITUS [None]
  - FOLLICULITIS [None]
  - GENITAL RASH [None]
  - HEPATITIS B [None]
  - HEPATITIS C [None]
  - HYPERGLYCAEMIA [None]
  - HYPERLIPIDAEMIA [None]
  - LUNG NEOPLASM MALIGNANT [None]
  - MIGRAINE [None]
  - NEUTROPHIL COUNT DECREASED [None]
  - OBSTRUCTIVE AIRWAYS DISORDER [None]
  - PHARYNGITIS STREPTOCOCCAL [None]
  - PLATELET COUNT DECREASED [None]
  - SCHIZOAFFECTIVE DISORDER [None]
  - SUBCUTANEOUS ABSCESS [None]
  - VULVOVAGINAL PRURITUS [None]
